FAERS Safety Report 8608847-2 (Version None)
Quarter: 2012Q3

REPORT INFORMATION
  Report Type: 
  Country: None (occurrence: None)
  Receive Date: 20120821
  Receipt Date: 20120815
  Transmission Date: 20120928
  Serious: Yes (Life-Threatening, Hospitalization)
  Sender: FDA-Public Use
  Company Number: DE-ROCHE-1018683

PATIENT
  Age: 76 Year
  Sex: Female
  Weight: 74.4 kg

DRUGS (26)
  1. FALITHROM [Concomitant]
     Dates: start: 20101001
  2. ACTRAPHANE HM 30/70 [Concomitant]
     Dates: start: 20101001
  3. SPIRONOLACTONE [Concomitant]
     Dates: start: 20101001
  4. SPIRONOLACTONE [Concomitant]
     Dates: start: 20101001
  5. ZOLPIDEM [Concomitant]
     Dates: start: 20101001
  6. PANTOPRAZOLE [Concomitant]
     Dates: start: 20111201
  7. PENTAERYTHRITOL TETRANITRATE [Concomitant]
     Dates: start: 20101001
  8. EZETIMIBE [Concomitant]
     Dosage: INEGY 10/40
     Dates: start: 20101001
  9. RAMIPRIL [Concomitant]
     Dates: start: 20111201
  10. TORSEMIDE [Concomitant]
     Dates: start: 20101001
  11. LEVEMIR [Concomitant]
     Dosage: TOTAL DAILY DOSE: 12 UNITS
     Dates: start: 20101201
  12. CONCOR 5 [Concomitant]
     Dates: start: 20101001
  13. PENTAERYTHRITOL TETRANITRATE [Concomitant]
     Dates: start: 20101001
  14. EZETIMIBE [Concomitant]
     Dosage: 10/20 MG
     Dates: start: 20101031
  15. PERINDOPRIL ERBUMINE [Concomitant]
     Dates: start: 20101001
  16. ASPIRIN [Concomitant]
     Dates: start: 20101001
  17. ACTRAPID [Concomitant]
     Dosage: 20 IU/ML
     Dates: start: 20101001
  18. LEVEMIR [Concomitant]
     Dosage: 12/UNIT
     Dates: start: 20101201
  19. ZELBORAF [Suspect]
     Indication: METASTATIC MALIGNANT MELANOMA
     Dosage: LAST DOSE PRIOR TO SAE:30 NOV 2011
     Route: 048
     Dates: start: 20111122, end: 20111212
  20. ZELBORAF [Suspect]
     Dosage: REDUCED DOSE TO 50 %
     Route: 048
     Dates: start: 20111222, end: 20111224
  21. XIPAMID [Concomitant]
     Dates: start: 20101001
  22. DIGITOXIN TAB [Concomitant]
     Dates: start: 20101031
  23. TORSEMIDE [Concomitant]
     Dates: start: 20101001
  24. DIGITOXIN TAB [Concomitant]
     Dates: start: 20101001
  25. BISOPROLOL FUMARATE [Concomitant]
     Dates: start: 20111201
  26. MARCUMAR [Concomitant]
     Dosage: AS NEEDED
     Dates: start: 20101001

REACTIONS (2)
  - GENERAL PHYSICAL HEALTH DETERIORATION [None]
  - PERICARDIAL HAEMORRHAGE [None]
